FAERS Safety Report 11177333 (Version 1)
Quarter: 2015Q2

REPORT INFORMATION
  Report Type: Spontaneous
  Country: US (occurrence: US)
  Receive Date: 20150610
  Receipt Date: 20150610
  Transmission Date: 20150821
  Serious: Yes (Hospitalization, Other)
  Sender: FDA-Public Use
  Company Number: US-JNJFOC-20150521466

PATIENT
  Age: 27 Year
  Sex: Female

DRUGS (4)
  1. COCAINE [Suspect]
     Active Substance: COCAINE
     Indication: PRODUCT USED FOR UNKNOWN INDICATION
     Route: 065
  2. ACETAMINOPHEN. [Suspect]
     Active Substance: ACETAMINOPHEN
     Route: 048
  3. BENZODIAZEPINE NOS [Suspect]
     Active Substance: BENZODIAZEPINE
     Indication: PRODUCT USED FOR UNKNOWN INDICATION
     Route: 065
  4. ACETAMINOPHEN. [Suspect]
     Active Substance: ACETAMINOPHEN
     Indication: PRODUCT USED FOR UNKNOWN INDICATION
     Dosage: 30 TABLETS OF 325 MG EACH, ONCE
     Route: 048

REACTIONS (9)
  - Jaundice [Recovering/Resolving]
  - Transaminases increased [Recovering/Resolving]
  - Minimal hepatic encephalopathy [Recovering/Resolving]
  - Somnolence [Recovering/Resolving]
  - International normalised ratio increased [Recovering/Resolving]
  - Suicide attempt [Unknown]
  - Intentional overdose [Recovering/Resolving]
  - Nausea [Recovering/Resolving]
  - Vomiting [Recovering/Resolving]
